FAERS Safety Report 7569736-8 (Version None)
Quarter: 2011Q2

REPORT INFORMATION
  Report Type: 
  Country: None (occurrence: None)
  Receive Date: 20110624
  Receipt Date: 20110609
  Transmission Date: 20111010
  Serious: Yes (Other)
  Sender: FDA-Public Use
  Company Number: US-JNJFOC-20110609533

PATIENT
  Age: 8 Week
  Sex: Female
  Weight: 4.08 kg

DRUGS (2)
  1. CONCENTRATED TYLENOL INFANT DROPS [Suspect]
     Indication: IMMUNISATION
     Route: 048
     Dates: start: 20110608, end: 20110608
  2. CONCENTRATED TYLENOL INFANT DROPS [Suspect]
     Route: 048

REACTIONS (2)
  - VOMITING [None]
  - PRODUCT QUALITY ISSUE [None]
